FAERS Safety Report 23690062 (Version 1)
Quarter: 2024Q2

REPORT INFORMATION
  Report Type: Spontaneous
  Country: US (occurrence: US)
  Receive Date: 20240401
  Receipt Date: 20240401
  Transmission Date: 20240716
  Serious: Yes (Hospitalization, Other)
  Sender: FDA-Public Use
  Company Number: US-GTI-000202

PATIENT
  Age: 77 Year
  Sex: Male

DRUGS (1)
  1. PREDNISONE [Suspect]
     Active Substance: PREDNISONE
     Indication: Myasthenia gravis
     Route: 065

REACTIONS (6)
  - Empyema [Unknown]
  - Cryptococcosis [Unknown]
  - Pleural effusion [Unknown]
  - Encephalopathy [Unknown]
  - Condition aggravated [Unknown]
  - Sepsis [Unknown]
